FAERS Safety Report 8933404 (Version 1)
Quarter: 2012Q4

REPORT INFORMATION
  Report Type: 
  Country: US (occurrence: US)
  Receive Date: 20121128
  Receipt Date: 20121128
  Transmission Date: 20130627
  Serious: Yes (Hospitalization)
  Sender: FDA-Public Use
  Company Number: US-PFIZER INC-2012299027

PATIENT
  Age: 78 Year
  Sex: Female
  Weight: 68.48 kg

DRUGS (1)
  1. CADUET [Suspect]
     Indication: HIGH CHOLESTEROL
     Dosage: [amlodipine besilate 10 mg]/ [atorvastatin calcium 10 mg], daily

REACTIONS (1)
  - Cervix carcinoma [Recovered/Resolved]
